FAERS Safety Report 9709657 (Version 2)
Quarter: 2013Q4

REPORT INFORMATION
  Report Type: Spontaneous
  Country: PL (occurrence: PL)
  Receive Date: 20131126
  Receipt Date: 20131203
  Transmission Date: 20140711
  Serious: Yes (Hospitalization)
  Sender: FDA-Public Use
  Company Number: PHHY2013PL135165

PATIENT
  Age: 17 Year
  Sex: Female
  Weight: 68.27 kg

DRUGS (1)
  1. EXFORGE [Suspect]
     Dosage: 14 DF, QD
     Dates: start: 20131101

REACTIONS (10)
  - Liver disorder [Unknown]
  - Coma [Unknown]
  - Suicide attempt [Unknown]
  - Circulatory collapse [Unknown]
  - Liver injury [Unknown]
  - Renal disorder [Unknown]
  - Intentional drug misuse [Unknown]
  - Vasodilatation [Unknown]
  - Blood pressure fluctuation [Unknown]
  - Overdose [Unknown]
